FAERS Safety Report 15637062 (Version 1)
Quarter: 2018Q4

REPORT INFORMATION
  Report Type: Report from Study
  Country: BR (occurrence: BR)
  Receive Date: 20181120
  Receipt Date: 20181120
  Transmission Date: 20190205
  Serious: Yes (Other)
  Sender: FDA-Public Use
  Company Number: BR-UCBSA-2018039624

PATIENT
  Age: 18 Year
  Sex: Male
  Weight: 36 kg

DRUGS (1)
  1. LEVETIRACETAM. [Suspect]
     Active Substance: LEVETIRACETAM
     Indication: SEIZURE
     Dosage: 250 MG, 3X/DAY (TID)
     Route: 048
     Dates: start: 201805

REACTIONS (2)
  - Aspiration [Unknown]
  - Off label use [Unknown]

NARRATIVE: CASE EVENT DATE: 201805
